FAERS Safety Report 7551862-0 (Version None)
Quarter: 2011Q2

REPORT INFORMATION
  Report Type: 
  Country: None (occurrence: None)
  Receive Date: 20110616
  Receipt Date: 20110614
  Transmission Date: 20111010
  Serious: Yes (Death)
  Sender: FDA-Public Use
  Company Number: US-AMGEN-USASP2011029530

PATIENT
  Sex: Male

DRUGS (8)
  1. PREDNISONE [Concomitant]
  2. LOVENOX [Concomitant]
  3. TOPROL-XL [Concomitant]
  4. LIPITOR [Concomitant]
  5. NPLATE [Suspect]
     Indication: IDIOPATHIC THROMBOCYTOPENIC PURPURA
     Dosage: UNK
     Dates: start: 20090522, end: 20110301
  6. MAGNESIUM SULFATE [Concomitant]
  7. GLYBURIDE [Concomitant]
  8. CORTICOSTEROIDS [Concomitant]
     Dosage: UNK
     Dates: start: 20080108

REACTIONS (2)
  - METASTASES TO LIVER [None]
  - COLON CANCER [None]
